FAERS Safety Report 16055145 (Version 2)
Quarter: 2019Q2

REPORT INFORMATION
  Report Type: Spontaneous
  Country: US (occurrence: US)
  Receive Date: 20190310
  Receipt Date: 20190407
  Transmission Date: 20190711
  Serious: No
  Sender: FDA-Public Use
  Company Number: US-JNJFOC-20190232625

PATIENT
  Age: 74 Year
  Sex: Female
  Weight: 62.6 kg

DRUGS (1)
  1. RISPERDAL CONSTA [Suspect]
     Active Substance: RISPERIDONE
     Indication: PRODUCT USED FOR UNKNOWN INDICATION
     Route: 030

REACTIONS (2)
  - Medication error [Unknown]
  - Product dose omission [Unknown]

NARRATIVE: CASE EVENT DATE: 20190221
